FAERS Safety Report 6952626-9 (Version None)
Quarter: 2010Q3

REPORT INFORMATION
  Report Type: 
  Country: None (occurrence: None)
  Receive Date: 20100829
  Receipt Date: 20100511
  Transmission Date: 20110219
  Serious: No
  Sender: FDA-Public Use
  Company Number: US-ABBOTT-10P-163-0643795-00

PATIENT
  Sex: Female

DRUGS (4)
  1. NIASPAN [Suspect]
     Indication: LIPIDS INCREASED
     Dosage: 500 MG DAILY AT BEDTIME
     Route: 048
  2. NIASPAN [Suspect]
     Dosage: 1.5-500 MG TABLETS AT BEDTIME
     Route: 048
  3. NIASPAN [Suspect]
     Dosage: 1000 MG DAILY AT BEDTIME
  4. ASPIRIN [Concomitant]
     Indication: PRODUCT USED FOR UNKNOWN INDICATION

REACTIONS (5)
  - FLUSHING [None]
  - INCORRECT DOSE ADMINISTERED [None]
  - PARAESTHESIA [None]
  - PRURITUS GENERALISED [None]
  - WRONG TECHNIQUE IN DRUG USAGE PROCESS [None]
